FAERS Safety Report 17534350 (Version 1)
Quarter: 2020Q1

REPORT INFORMATION
  Report Type: Report from Study
  Country: GB (occurrence: GB)
  Receive Date: 20200312
  Receipt Date: 20200312
  Transmission Date: 20200409
  Serious: Yes (Death, Other)
  Sender: FDA-Public Use
  Company Number: GB-CASPER PHARMA LLC-2020CAS000117

PATIENT
  Age: 18 Year
  Sex: Female

DRUGS (3)
  1. BISMUTH, METRONIDAZOLE, TETRACYCLIN [Suspect]
     Active Substance: BISMUTH SUBSALICYLATE\METRONIDAZOLE\TETRACYCLINE HYDROCHLORIDE
     Dosage: 15 MILLIGRAM/KILOGRAM EVERY 8 HOURS
     Route: 042
  2. BISMUTH, METRONIDAZOLE, TETRACYCLIN [Suspect]
     Active Substance: BISMUTH SUBSALICYLATE\METRONIDAZOLE\TETRACYCLINE HYDROCHLORIDE
     Dosage: 7.5 MILLIGRAM/KILOGRAM EVERY 8 HOURS
     Route: 042
  3. BISMUTH, METRONIDAZOLE, TETRACYCLIN [Suspect]
     Active Substance: BISMUTH SUBSALICYLATE\METRONIDAZOLE\TETRACYCLINE HYDROCHLORIDE
     Indication: DIARRHOEA
     Dosage: EVERY 8 HOURS
     Route: 048

REACTIONS (2)
  - Shock [Fatal]
  - Acute hepatic failure [Fatal]
